FAERS Safety Report 21581980 (Version 1)
Quarter: 2022Q4

REPORT INFORMATION
  Report Type: Spontaneous
  Country: US (occurrence: US)
  Receive Date: 20221111
  Receipt Date: 20221111
  Transmission Date: 20230113
  Serious: No
  Sender: FDA-Public Use
  Company Number: US-JNJFOC-20221043517

PATIENT
  Age: 34 Year
  Sex: Female

DRUGS (1)
  1. WOMENS ROGAINE UNSCENTED [Suspect]
     Active Substance: MINOXIDIL
     Indication: Alopecia
     Dosage: DOSE: DID NOT MEASURE,USED JUST TO COVER THAT AREA IN THE BACK OF HEAD
     Route: 061
     Dates: start: 20221006

REACTIONS (3)
  - Incorrect dose administered [Unknown]
  - Poor quality product administered [Unknown]
  - Product formulation issue [Unknown]

NARRATIVE: CASE EVENT DATE: 20221001
